FAERS Safety Report 15388710 (Version 1)
Quarter: 2018Q3

REPORT INFORMATION
  Report Type: Spontaneous
  Country: US (occurrence: US)
  Receive Date: 20180907
  Receipt Date: 20180907
  Transmission Date: 20181010
  Serious: Yes (Life-Threatening)
  Sender: FDA-Public Use
  Company Number: None

PATIENT
  Age: 32 Year
  Sex: Male

DRUGS (1)
  1. KETOROLAC [Suspect]
     Active Substance: KETOROLAC\KETOROLAC TROMETHAMINE
     Indication: ABDOMINAL PAIN UPPER
     Dosage: ?          OTHER FREQUENCY:ONCE;?
     Route: 042
     Dates: start: 20180721, end: 20180721

REACTIONS (4)
  - Asthma [None]
  - Abdominal pain upper [None]
  - Enlarged uvula [None]
  - Anaphylactic reaction [None]

NARRATIVE: CASE EVENT DATE: 20180722
